FAERS Safety Report 10371685 (Version 2)
Quarter: 2014Q3

REPORT INFORMATION
  Report Type: Spontaneous
  Country: CA (occurrence: CA)
  Receive Date: 20140808
  Receipt Date: 20140808
  Transmission Date: 20150326
  Serious: Yes (Hospitalization)
  Sender: FDA-Public Use
  Company Number: CA-BAXTER-2014BAX043564

PATIENT
  Sex: Male

DRUGS (2)
  1. DIANEAL W/ DEXTROSE 1.5% [Suspect]
     Active Substance: CALCIUM CHLORIDE\DEXTROSE\MAGNESIUM CHLORIDE\SODIUM CHLORIDE\SODIUM LACTATE
     Indication: PERITONEAL DIALYSIS
     Route: 033
     Dates: start: 201312
  2. DIANEAL W/ DEXTROSE 2.5% [Suspect]
     Active Substance: CALCIUM CHLORIDE\DEXTROSE\MAGNESIUM CHLORIDE\SODIUM CHLORIDE\SODIUM LACTATE
     Indication: PERITONEAL DIALYSIS
     Route: 033
     Dates: start: 201312

REACTIONS (7)
  - Muscle spasms [Not Recovered/Not Resolved]
  - Hypertension [Unknown]
  - Asthenia [Unknown]
  - Peritoneal dialysis complication [Unknown]
  - Muscle twitching [Not Recovered/Not Resolved]
  - Orthostatic hypotension [Unknown]
  - Vomiting [Not Recovered/Not Resolved]
